FAERS Safety Report 8511545-7 (Version None)
Quarter: 2012Q3

REPORT INFORMATION
  Report Type: 
  Country: None (occurrence: None)
  Receive Date: 20120716
  Receipt Date: 20120703
  Transmission Date: 20120928
  Serious: Yes (Hospitalization)
  Sender: FDA-Public Use
  Company Number: PHHY2012FR058423

PATIENT
  Sex: Male

DRUGS (10)
  1. MODOPAR [Concomitant]
     Indication: PARKINSON'S DISEASE
     Dosage: 468.75 MG,DAILY
     Dates: start: 20030101
  2. ACETAMINOPHEN AND TRAMADOL HCL [Concomitant]
     Indication: PAIN
     Dosage: 20 MG, TID
  3. BROMAZEPAM [Concomitant]
     Indication: ANXIETY
  4. VENLAFAXINE HYDROCHOLRIDE [Concomitant]
     Indication: MAJOR DEPRESSION
  5. CLOZAPINE [Suspect]
     Indication: AGITATION
     Route: 048
     Dates: start: 20120430, end: 20120507
  6. MODOPAR [Concomitant]
     Dosage: 526.5 MG, UNK
  7. DOXAZOSIN MESYLATE [Concomitant]
     Indication: PROSTATIC ADENOMA
     Dosage: 1.8 MG,DAILY
  8. TIAPRIDAL [Concomitant]
     Indication: AGITATION
     Dosage: UNK UKN, (15 DROPS 5 TIMES EVERY 3 DAYS)
     Route: 048
     Dates: end: 20120507
  9. STALEVO 100 [Concomitant]
     Indication: PARKINSON'S DISEASE
     Route: 048
     Dates: end: 20120511
  10. ZOLPIDEM TARTRATE [Concomitant]
     Indication: SLEEP DISORDER
     Dosage: 10 MG, DAILY

REACTIONS (7)
  - RESPIRATORY DISTRESS [None]
  - SOMNOLENCE [None]
  - CONFUSIONAL STATE [None]
  - INCOHERENT [None]
  - DYSPHAGIA [None]
  - ALTERED STATE OF CONSCIOUSNESS [None]
  - LUNG DISORDER [None]
